FAERS Safety Report 7784796-7 (Version None)
Quarter: 2011Q3

REPORT INFORMATION
  Report Type: 
  Country: None (occurrence: None)
  Receive Date: 20110928
  Receipt Date: 20110923
  Transmission Date: 20111222
  Serious: Yes (Life-Threatening)
  Sender: FDA-Public Use
  Company Number: FR-PFIZER INC-2011226621

PATIENT
  Age: 31 Year
  Sex: Male

DRUGS (3)
  1. CERUBIDINE [Suspect]
     Indication: ACUTE LEUKAEMIA
     Dosage: 120 MG, 1X/DAY
     Route: 042
     Dates: start: 20081117, end: 20081119
  2. GEMTUZUMAB OZOGAMICIN [Suspect]
     Indication: ACUTE LEUKAEMIA
     Dosage: 12 MG, 1X/DAY
     Route: 042
     Dates: start: 20081120, end: 20081120
  3. CYTARABINE [Suspect]
     Indication: ACUTE LEUKAEMIA
     Dosage: 400 G, 1X/DAY
     Route: 039
     Dates: start: 20081117, end: 20081123

REACTIONS (1)
  - ESCHERICHIA SEPSIS [None]
